FAERS Safety Report 9769609 (Version 1)
Quarter: 2013Q3

REPORT INFORMATION
  Report Type: Spontaneous
  Country: BR (occurrence: None)
  Receive Date: 20130910
  Receipt Date: 20130910
  Transmission Date: 20140515
  Serious: Yes (Other)
  Sender: FDA-Public Use
  Company Number: 2013SA083552

PATIENT
  Age: 55 Year
  Sex: Female
  Weight: 69 kg

DRUGS (14)
  1. APIDRA (INSULIN GLULISINE 100 INTERNATIONAL UNITS/MILLILITRE [Suspect]
     Indication: TYPE 1 DIABETES MELLITUS
     Dosage: SUBCUTANEOUS/INJECTION, SOLUTION/100 INTERNATIONAL U NITS(S)/MILLILITRE
     Route: 058
  2. LANTUS (INSULIN GLARGINE) [Suspect]
     Indication: TYPE 1 DIABETES MELLITUS
     Route: 058
     Dates: start: 2012
  3. AUTOPEN 24 [Suspect]
     Indication: DEVICE THERAPY
  4. CALCIUM [Concomitant]
  5. CLOPIDOGREL [Concomitant]
  6. SOMALGIN CARDIO [Concomitant]
  7. ALL OTHER THERAPEUTIC PRODUCTS [Concomitant]
  8. INDAPEN [Suspect]
  9. AAS PROTECT [Concomitant]
  10. GLIFAGE [Concomitant]
  11. DIOVANE [Concomitant]
  12. PURAN T4 [Concomitant]
  13. CLIKSTAR [Concomitant]
  14. CALCIUM/VITAMIN D [Concomitant]

REACTIONS (6)
  - Arterial occlusive disease [None]
  - Fatigue [None]
  - Foot fracture [None]
  - Musculoskeletal disorder [None]
  - Incorrect dose administered [None]
  - Fall [None]
